FAERS Safety Report 19958300 (Version 2)
Quarter: 2023Q4

REPORT INFORMATION
  Report Type: Report from Study
  Country: KR (occurrence: KR)
  Receive Date: 20211015
  Receipt Date: 20231115
  Transmission Date: 20240110
  Serious: Yes (Life-Threatening)
  Sender: FDA-Public Use
  Company Number: KR-TAKEDA-2021TJP105095

PATIENT

DRUGS (6)
  1. NIRAPARIB [Suspect]
     Active Substance: NIRAPARIB
     Indication: Neutrophil count decreased
     Dosage: 200 MILLIGRAM, ONCE DAILY
     Route: 065
     Dates: start: 20210415, end: 20210512
  2. NIRAPARIB [Suspect]
     Active Substance: NIRAPARIB
     Dosage: 200 MILLIGRAM, ONCE DAILY
     Route: 065
     Dates: start: 20210517
  3. VIREAD [Concomitant]
     Active Substance: TENOFOVIR DISOPROXIL FUMARATE
     Indication: Hepatitis B
     Dosage: 300 MILLIGRAM, QD
     Route: 048
     Dates: start: 20201104
  4. NEURONTIN [Concomitant]
     Active Substance: GABAPENTIN
     Indication: Peripheral sensory neuropathy
     Dosage: 300 MILLIGRAM, PRN
     Route: 048
     Dates: start: 20201217
  5. FILGRASTIM [Concomitant]
     Active Substance: FILGRASTIM
     Indication: Neutrophil count decreased
     Dosage: 300 MCG ,ONCE
     Route: 058
     Dates: start: 20210513, end: 20210513
  6. DARBEPOETIN ALFA [Concomitant]
     Active Substance: DARBEPOETIN ALFA
     Indication: Anaemia
     Dosage: 320.625 MCG
     Route: 058
     Dates: start: 20210614, end: 20210614

REACTIONS (1)
  - Anaemia [Recovered/Resolved]

NARRATIVE: CASE EVENT DATE: 20210712
